FAERS Safety Report 10184915 (Version 4)
Quarter: 2014Q3

REPORT INFORMATION
  Report Type: Spontaneous
  Country: IT (occurrence: IT)
  Receive Date: 20140521
  Receipt Date: 20140731
  Transmission Date: 20150326
  Serious: Yes (Life-Threatening, Hospitalization, Other)
  Sender: FDA-Public Use
  Company Number: IT-ELI_LILLY_AND_COMPANY-IT201405004166

PATIENT
  Age: 86 Year
  Sex: Female

DRUGS (14)
  1. DELTACORTENE [Concomitant]
     Active Substance: PREDNISONE
     Dosage: 5 MG, UNK
     Route: 048
  2. MICROSER [Concomitant]
     Dosage: 8 MG, QD
     Route: 048
     Dates: start: 20120913, end: 20130310
  3. CITALOPRAM [Concomitant]
     Active Substance: CITALOPRAM HYDROBROMIDE
     Route: 048
  4. LEVOBREN [Concomitant]
     Active Substance: LEVOSULPIRIDE
     Dosage: 25 MG, UNK
     Route: 048
  5. HUMALOG [Suspect]
     Active Substance: INSULIN LISPRO
     Indication: MEDICATION ERROR
     Dosage: 37 DF, QD
     Route: 048
     Dates: start: 20120913, end: 20140512
  6. ENALAPRIL [Concomitant]
     Active Substance: ENALAPRIL
     Dosage: 5 MG, UNK
     Route: 048
  7. HUMALOG [Suspect]
     Active Substance: INSULIN LISPRO
     Dosage: 36 DF, QD
     Route: 065
     Dates: start: 20130115, end: 20130310
  8. LASIX [Concomitant]
     Active Substance: FUROSEMIDE
     Dosage: 50 MG, QD
     Dates: start: 20120913, end: 20140214
  9. MESTINON [Concomitant]
     Active Substance: PYRIDOSTIGMINE BROMIDE
     Dosage: 60 MG, UNK
     Route: 048
     Dates: start: 20120913, end: 20131022
  10. HUMALOG [Suspect]
     Active Substance: INSULIN LISPRO
     Dosage: 30 DF, QD
     Route: 065
     Dates: start: 20140319, end: 20140320
  11. KLACID                             /00984601/ [Concomitant]
     Dosage: 1000 MG, QD
     Dates: start: 20130107, end: 20130114
  12. LORAZEPAM. [Concomitant]
     Active Substance: LORAZEPAM
     Dosage: UNK DF, UNK
     Route: 048
  13. LANTUS [Suspect]
     Active Substance: INSULIN GLARGINE
     Indication: MEDICATION ERROR
     Dosage: 15 U, QD
     Route: 058
     Dates: start: 20120913, end: 20131008
  14. LANSOPRAZOLE TEVA [Concomitant]
     Dosage: 30 MG, UNK
     Route: 048

REACTIONS (3)
  - Malnutrition [Unknown]
  - Hypoglycaemia [Recovered/Resolved]
  - Incorrect dose administered [Recovered/Resolved]

NARRATIVE: CASE EVENT DATE: 20130109
